FAERS Safety Report 23982706 (Version 9)
Quarter: 2025Q3

REPORT INFORMATION
  Report Type: Report from Study
  Country: US (occurrence: US)
  Receive Date: 20240617
  Receipt Date: 20250707
  Transmission Date: 20251020
  Serious: Yes (Other)
  Sender: MYLAN
  Company Number: US-MYLANLABS-2024M1053841

PATIENT
  Sex: Female
  Weight: 63.5 kg

DRUGS (1)
  1. GLATIRAMER ACETATE [Suspect]
     Active Substance: GLATIRAMER ACETATE
     Indication: Multiple sclerosis
     Dosage: 40 MILLIGRAM, 3XW (THREE TIMES A WEEK)

REACTIONS (14)
  - Multiple sclerosis [Unknown]
  - Fall [Unknown]
  - Head injury [Unknown]
  - Alopecia [Unknown]
  - Injury [Unknown]
  - Bladder disorder [Unknown]
  - Fall [Unknown]
  - Injection site pain [Recovered/Resolved]
  - Product dose omission issue [Unknown]
  - Product leakage [Unknown]
  - Product temperature excursion issue [Unknown]
  - Product outer packaging issue [Unknown]
  - Incorrect dose administered by device [Unknown]
  - Device breakage [Unknown]
